FAERS Safety Report 5088125-1 (Version None)
Quarter: 2006Q3

REPORT INFORMATION
  Report Type: 
  Country: None (occurrence: None)
  Receive Date: 20060727
  Receipt Date: 20060424
  Transmission Date: 20061208
  Serious: Yes (Other)
  Sender: FDA-Public Use
  Company Number: 2006025048

PATIENT
  Age: 79 Year
  Sex: Male
  Weight: 83.9154 kg

DRUGS (14)
  1. LYRICA [Suspect]
     Indication: NEUROPATHY PERIPHERAL
     Dosage: 150 MG (75 MG, 2 IN 1 D)
     Route: 065
     Dates: start: 20060128, end: 20060215
  2. DICLOFENAC SODIUM [Concomitant]
  3. AMBIEN [Concomitant]
  4. COZAAR [Concomitant]
  5. ALLOPURINOL [Concomitant]
  6. BISOPROLOL FUMARATE AND HYDROCHLOROTHIAZIDE [Concomitant]
  7. NORVASC [Concomitant]
  8. FUROSEMIDE [Concomitant]
  9. ASPIRIN [Concomitant]
  10. CENTRUM (MINERALS NOS, VITAMINS NOS) [Concomitant]
  11. CALCIUM WITH VITAMIN D (CALCIUM PHOSPHATE, CALCIUM SODIUM LACTATE, ERG [Concomitant]
  12. HYDROCODONE (HYDROCODONE) [Concomitant]
  13. FIBERALL (PSYLLIUM HYDROPHILIC MUCILLOID) [Concomitant]
  14. FENTANYL [Concomitant]

REACTIONS (7)
  - ARTHRALGIA [None]
  - DIARRHOEA [None]
  - DRY MOUTH [None]
  - DYSKINESIA [None]
  - HEADACHE [None]
  - OEDEMA PERIPHERAL [None]
  - PAIN IN EXTREMITY [None]
